FAERS Safety Report 20625622 (Version 1)
Quarter: 2022Q1

REPORT INFORMATION
  Report Type: Spontaneous
  Country: US (occurrence: None)
  Receive Date: 20220323
  Receipt Date: 20220323
  Transmission Date: 20220424
  Serious: No
  Sender: FDA-Public Use
  Company Number: US-ROCHE-3022300

PATIENT

DRUGS (1)
  1. GAVRETO [Suspect]
     Active Substance: PRALSETINIB
     Indication: Pancreatic carcinoma
     Route: 048
     Dates: start: 202111

REACTIONS (2)
  - Off label use [Unknown]
  - No adverse event [Unknown]
